FAERS Safety Report 23605184 (Version 1)
Quarter: 2024Q1

REPORT INFORMATION
  Report Type: Spontaneous
  Country: PL (occurrence: PL)
  Receive Date: 20240307
  Receipt Date: 20240307
  Transmission Date: 20240410
  Serious: Yes (Death, Other)
  Sender: FDA-Public Use
  Company Number: None

PATIENT
  Age: 73 Year
  Sex: Female

DRUGS (6)
  1. CLINDAMYCIN PHOSPHATE [Suspect]
     Active Substance: CLINDAMYCIN PHOSPHATE
     Indication: Escherichia bacteraemia
     Dosage: 300 MG, 3X/DAY
     Route: 042
  2. DEXAMETHASONE [Suspect]
     Active Substance: DEXAMETHASONE
     Dosage: UNK
  3. CIPROFLOXACIN [Suspect]
     Active Substance: CIPROFLOXACIN
     Indication: Escherichia bacteraemia
     Dosage: 200 MG, 2X/DAY
     Route: 042
  4. LEVOFLOXACIN [Suspect]
     Active Substance: LEVOFLOXACIN
     Indication: Conjunctivitis
     Dosage: UNK
     Route: 061
  5. NYSTATIN [Suspect]
     Active Substance: NYSTATIN
  6. CISPLATIN [Concomitant]
     Active Substance: CISPLATIN
     Dosage: 40 MG/M2, WEEKLY

REACTIONS (2)
  - Sepsis [Fatal]
  - Drug ineffective [Fatal]
